FAERS Safety Report 4798870-0 (Version None)
Quarter: 2005Q4

REPORT INFORMATION
  Report Type: 
  Country: None (occurrence: None)
  Receive Date: 20051014
  Receipt Date: 20051007
  Transmission Date: 20060501
  Serious: Yes (Hospitalization, Disabling)
  Sender: FDA-Public Use
  Company Number: PL-GLAXOSMITHKLINE-B0397063A

PATIENT
  Age: 8 Month
  Sex: Female
  Weight: 8.5 kg

DRUGS (3)
  1. ZINACEF [Suspect]
     Indication: DIARRHOEA INFECTIOUS
     Route: 030
     Dates: start: 20050526, end: 20050630
  2. AMIKACIN SULPHATE [Concomitant]
     Indication: DIARRHOEA
     Route: 030
     Dates: start: 20050602, end: 20050607
  3. INFANRIX HEXA [Concomitant]
     Indication: PROPHYLAXIS
     Dates: start: 20050401

REACTIONS (7)
  - ADVERSE DRUG REACTION [None]
  - BLOOD CALCIUM INCREASED [None]
  - BLOOD PHOSPHORUS INCREASED [None]
  - GENERAL PHYSICAL HEALTH DETERIORATION [None]
  - GRANULOMA SKIN [None]
  - NEOPLASM [None]
  - PROTEUS INFECTION [None]
